FAERS Safety Report 4310002-1 (Version None)
Quarter: 2004Q1

REPORT INFORMATION
  Report Type: 
  Country: None (occurrence: None)
  Receive Date: 20040301
  Receipt Date: 20031118
  Transmission Date: 20041129
  Serious: No
  Sender: FDA-Public Use
  Company Number: WAES 0310USA01988

PATIENT
  Age: 73 Year
  Sex: Male
  Weight: 71.6683 kg

DRUGS (4)
  1. ZETIA [Suspect]
     Indication: HYPERLIPIDAEMIA
     Dosage: 10 MG/DAILY/PO
     Route: 048
     Dates: start: 20030405, end: 20030603
  2. ADVAIR DISKUS 100/50 [Concomitant]
  3. PEPCID [Concomitant]
  4. TICLID [Concomitant]

REACTIONS (2)
  - COW'S MILK INTOLERANCE [None]
  - DIARRHOEA [None]
